FAERS Safety Report 4928042-8 (Version None)
Quarter: 2006Q1

REPORT INFORMATION
  Report Type: 
  Country: None (occurrence: None)
  Receive Date: 20060127
  Receipt Date: 20051121
  Transmission Date: 20060701
  Serious: Yes (Other)
  Sender: FDA-Public Use
  Company Number: 2005160529

PATIENT
  Sex: 0

DRUGS (1)
  1. LYRICA [Suspect]
     Indication: ILL-DEFINED DISORDER
     Dosage: UNKNOWN (50MG, UNKNOWN) UNKN
     Route: 065

REACTIONS (2)
  - ABDOMINAL PAIN [None]
  - NAUSEA [None]
